FAERS Safety Report 10049406 (Version 1)
Quarter: 2014Q2

REPORT INFORMATION
  Report Type: Report from Study
  Country: US (occurrence: US)
  Receive Date: 20140401
  Receipt Date: 20140401
  Transmission Date: 20141212
  Serious: Yes (Other)
  Sender: FDA-Public Use
  Company Number: US-JNJFOC-20140316252

PATIENT
  Age: 23 Year
  Sex: Male

DRUGS (4)
  1. SIMPONI [Suspect]
     Indication: COLITIS ULCERATIVE
     Route: 058
     Dates: start: 201308, end: 201401
  2. 6 MERCAPTOPURINE [Concomitant]
     Indication: COLITIS ULCERATIVE
     Route: 048
  3. PREDNISONE [Concomitant]
     Indication: COLITIS ULCERATIVE
     Route: 048
  4. THYROID HORMONES [Concomitant]
     Indication: HYPOTHYROIDISM
     Route: 065

REACTIONS (3)
  - Clostridium difficile infection [Recovered/Resolved]
  - Anaemia [Not Recovered/Not Resolved]
  - Drug effect decreased [Recovered/Resolved]
